FAERS Safety Report 5650410-X (Version None)
Quarter: 2008Q1

REPORT INFORMATION
  Report Type: 
  Country: None (occurrence: None)
  Receive Date: 20080305
  Receipt Date: 20080225
  Transmission Date: 20080703
  Serious: Yes (Hospitalization)
  Sender: FDA-Public Use
  Company Number: FR-JNJFOC-20080206136

PATIENT
  Sex: Female

DRUGS (7)
  1. DURAGESIC-100 [Suspect]
     Indication: BACK PAIN
     Route: 062
     Dates: start: 20071115, end: 20080107
  2. RENITEC [Suspect]
     Indication: HYPERTENSION
     Route: 048
  3. LYRICA [Suspect]
     Indication: LUMBAR SPINAL STENOSIS
     Route: 048
  4. SEROPLEX [Suspect]
     Indication: MAJOR DEPRESSION
     Route: 048
  5. TARDYFERON [Suspect]
     Indication: DRUG USE FOR UNKNOWN INDICATION
     Route: 048
  6. LEVOTHYROX [Suspect]
     Indication: HYPOTHYROIDISM
     Route: 048
  7. FUROSEMIDE [Suspect]
     Indication: HYPERTENSION
     Route: 048

REACTIONS (4)
  - DYSKINESIA [None]
  - MUSCLE SPASMS [None]
  - MYOCLONUS [None]
  - RHABDOMYOLYSIS [None]
